FAERS Safety Report 7536061-0 (Version None)
Quarter: 2011Q2

REPORT INFORMATION
  Report Type: 
  Country: None (occurrence: None)
  Receive Date: 20110609
  Receipt Date: 20110527
  Transmission Date: 20111010
  Serious: Yes (Hospitalization, Other)
  Sender: FDA-Public Use
  Company Number: US-ELI_LILLY_AND_COMPANY-US201001002010

PATIENT
  Sex: Female

DRUGS (6)
  1. CHOLESTEROL [Concomitant]
  2. FORTEO [Suspect]
     Dosage: 20 UG, QD
  3. DOXYCYCLINE [Concomitant]
     Indication: IRRITABLE BOWEL SYNDROME
  4. ANTIHYPERTENSIVES [Concomitant]
     Indication: BLOOD PRESSURE
  5. VITAMIN D [Concomitant]
     Dosage: UNK, MONTHLY (1/M)
  6. FORTEO [Suspect]
     Indication: OSTEOPOROSIS
     Dosage: 20 UG, DAILY (1/D)
     Route: 065
     Dates: start: 20091001, end: 20091201

REACTIONS (7)
  - HIP FRACTURE [None]
  - URINARY TRACT PAIN [None]
  - FEMUR FRACTURE [None]
  - FALL [None]
  - CYSTITIS [None]
  - IMPAIRED HEALING [None]
  - GAIT DISTURBANCE [None]
